FAERS Safety Report 4818605-2 (Version None)
Quarter: 2005Q4

REPORT INFORMATION
  Report Type: 
  Country: None (occurrence: None)
  Receive Date: 20051102
  Receipt Date: 20051021
  Transmission Date: 20060501
  Serious: Yes (Other)
  Sender: FDA-Public Use
  Company Number: US-AMGEN-US155813

PATIENT
  Age: 60 Year
  Sex: Male

DRUGS (1)
  1. EPOGEN [Suspect]
     Indication: DIALYSIS
     Dates: start: 20040701

REACTIONS (3)
  - MARROW HYPERPLASIA [None]
  - MYELODYSPLASTIC SYNDROME [None]
  - THERAPEUTIC RESPONSE DECREASED [None]
